FAERS Safety Report 26110521 (Version 2)
Quarter: 2025Q4

REPORT INFORMATION
  Report Type: Spontaneous
  Country: US (occurrence: US)
  Receive Date: 20251202
  Receipt Date: 20251210
  Transmission Date: 20260117
  Serious: No
  Sender: LUPIN
  Company Number: US-LUPIN PHARMACEUTICALS INC.-2025-10679

PATIENT
  Age: 74 Year
  Weight: 81.633 kg

DRUGS (10)
  1. ALBUTEROL SULFATE [Suspect]
     Active Substance: ALBUTEROL SULFATE
     Indication: Wheezing
     Dosage: UNK, PRN 2 INHALATIONS EVERY 4 HOURS
  2. ALBUTEROL SULFATE [Suspect]
     Active Substance: ALBUTEROL SULFATE
     Dosage: UNK, PRN, 2 INHALATIONS EVERY 4 HOURS
  3. ALBUTEROL SULFATE [Suspect]
     Active Substance: ALBUTEROL SULFATE
     Dosage: UNK, PRN, 2 INHALATIONS EVERY 4 HOURS
  4. ALBUTEROL SULFATE [Suspect]
     Active Substance: ALBUTEROL SULFATE
     Dosage: UNK, PRN, 2 INHALATIONS EVERY 4 HOURS
  5. ALBUTEROL SULFATE [Suspect]
     Active Substance: ALBUTEROL SULFATE
     Dosage: UNK, PRN, 2 INHALATIONS EVERY 4 HOURS
  6. ALBUTEROL SULFATE [Suspect]
     Active Substance: ALBUTEROL SULFATE
     Dosage: UNK, PRN, 2 INHALATIONS EVERY 4 HOURS
  7. ALBUTEROL SULFATE [Suspect]
     Active Substance: ALBUTEROL SULFATE
     Dosage: UNK, PRN, 2 INHALATIONS EVERY 4 HOURS
  8. ALBUTEROL SULFATE [Suspect]
     Active Substance: ALBUTEROL SULFATE
     Dosage: UNK, PRN, 2 INHALATIONS EVERY 4 HOURS
  9. ALBUTEROL SULFATE [Suspect]
     Active Substance: ALBUTEROL SULFATE
     Dosage: UNK, PRN, 2 INHALATIONS EVERY 4 HOURS
  10. ALBUTEROL SULFATE [Suspect]
     Active Substance: ALBUTEROL SULFATE
     Dosage: UNK, PRN, 2 INHALATIONS EVERY 4 HOURS

REACTIONS (5)
  - Incorrect dose administered [Unknown]
  - Device use error [Unknown]
  - Device deposit issue [Unknown]
  - Wrong technique in product usage process [Unknown]
  - No adverse event [Unknown]
